FAERS Safety Report 16489625 (Version 1)
Quarter: 2019Q2

REPORT INFORMATION
  Report Type: Spontaneous
  Country: US (occurrence: US)
  Receive Date: 20190628
  Receipt Date: 20190628
  Transmission Date: 20190711
  Serious: No
  Sender: FDA-Public Use
  Company Number: US-ACCORD-070559

PATIENT
  Age: 50 Year
  Sex: Female

DRUGS (1)
  1. CLONAZEPAM ACCORD [Suspect]
     Active Substance: CLONAZEPAM
     Indication: DEPRESSION
     Route: 048
     Dates: start: 20180701, end: 20180731

REACTIONS (7)
  - Gastrooesophageal reflux disease [Unknown]
  - Product substitution issue [Unknown]
  - Off label use [Unknown]
  - Malaise [Unknown]
  - Diarrhoea [Unknown]
  - Muscle spasms [Unknown]
  - Fatigue [Unknown]
